FAERS Safety Report 6234480-6 (Version None)
Quarter: 2009Q2

REPORT INFORMATION
  Report Type: 
  Country: None (occurrence: None)
  Receive Date: 20090618
  Receipt Date: 20080603
  Transmission Date: 20091009
  Serious: No
  Sender: FDA-Public Use
  Company Number: US-BRISTOL-MYERS SQUIBB COMPANY-14215420

PATIENT
  Age: 81 Year
  Sex: Male

DRUGS (1)
  1. CARBIDOPA + LEVODOPA [Suspect]
     Indication: DEMENTIA ALZHEIMER'S TYPE
     Dosage: 1 DOSAGE FORM = 1 TAB.
     Route: 048
     Dates: start: 20080428, end: 20080530

REACTIONS (2)
  - DIZZINESS [None]
  - VOMITING [None]
